FAERS Safety Report 5230798-4 (Version None)
Quarter: 2007Q1

REPORT INFORMATION
  Report Type: 
  Country: None (occurrence: None)
  Receive Date: 20070202
  Receipt Date: 20070117
  Transmission Date: 20070707
  Serious: Yes (Hospitalization)
  Sender: FDA-Public Use
  Company Number: 2007000111

PATIENT
  Age: 59 Year
  Sex: Male

DRUGS (8)
  1. ERLOTINIB (TABLET) [Suspect]
     Indication: PANCREATIC CARCINOMA METASTATIC
     Dosage: 100 MG  QD, ORAL
     Route: 048
     Dates: start: 20060719, end: 20070103
  2. BEVACIZUMAB (INJECTION FOR INFUSION) [Suspect]
     Indication: PANCREATIC CARCINOMA METASTATIC
     Dosage: BIWEEKLY, INTRAVENOUS
     Route: 042
     Dates: start: 20060719, end: 20070103
  3. GEMCITABINE [Suspect]
     Indication: PANCREATIC CARCINOMA METASTATIC
     Dosage: 1425 MG Q WEEK, INTRAVENOUS
     Route: 042
     Dates: start: 20060524, end: 20060706
  4. OMEPRAZOLE [Concomitant]
  5. LOPERAMIDE HCL [Concomitant]
  6. METOCLOPRAMIDE [Concomitant]
  7. FUROSEMIDE [Concomitant]
  8. SPIRONOLACTONE [Concomitant]

REACTIONS (5)
  - DEPRESSED MOOD [None]
  - FATIGUE [None]
  - LEFT VENTRICULAR FAILURE [None]
  - PLEURAL EFFUSION [None]
  - VOMITING [None]
